FAERS Safety Report 5017257-9 (Version None)
Quarter: 2006Q2

REPORT INFORMATION
  Report Type: 
  Country: None (occurrence: None)
  Receive Date: 20060602
  Receipt Date: 20060510
  Transmission Date: 20061013
  Serious: Yes (Life-Threatening, Hospitalization)
  Sender: FDA-Public Use
  Company Number: JP-MERCK-0605USA02102

PATIENT
  Age: 78 Year
  Sex: Male
  Weight: 60 kg

DRUGS (9)
  1. SINGULAIR [Suspect]
     Indication: ASTHMA
     Route: 048
     Dates: start: 20060413, end: 20060418
  2. AVISHOT [Suspect]
     Route: 048
     Dates: start: 20060413, end: 20060418
  3. ADALAT [Concomitant]
     Route: 048
     Dates: start: 19961022, end: 20060420
  4. SERATRODAST [Concomitant]
     Route: 048
     Dates: start: 19961009, end: 20060420
  5. GASCON [Concomitant]
     Route: 048
     Dates: start: 19980630, end: 20060420
  6. MAGNESIUM OXIDE [Concomitant]
     Route: 048
     Dates: start: 19980630, end: 20060420
  7. ZYRTEC [Concomitant]
     Route: 048
     Dates: start: 20021128, end: 20060412
  8. GOSHA-JINKI-GAN [Concomitant]
     Route: 048
     Dates: start: 20060419, end: 20060419
  9. ZOLPIDEM TARTRATE [Concomitant]
     Indication: INSOMNIA
     Route: 048
     Dates: start: 20060419, end: 20060419

REACTIONS (2)
  - HEPATITIS FULMINANT [None]
  - INSOMNIA [None]
